FAERS Safety Report 5838322-X (Version None)
Quarter: 2008Q3

REPORT INFORMATION
  Report Type: 
  Country: None (occurrence: None)
  Receive Date: 20080808
  Receipt Date: 20080730
  Transmission Date: 20090109
  Serious: Yes (Hospitalization)
  Sender: FDA-Public Use
  Company Number: US-AMGEN-STX260533

PATIENT
  Sex: Male
  Weight: 105.8 kg

DRUGS (23)
  1. ENBREL [Suspect]
     Indication: RHEUMATOID ARTHRITIS
     Route: 058
     Dates: start: 19980101
  2. PROMETHAZINE [Suspect]
  3. PREDNISONE [Concomitant]
     Route: 065
     Dates: start: 19900101
  4. IMURAN [Concomitant]
     Route: 065
     Dates: start: 19900101
  5. MORPHINE [Concomitant]
     Route: 065
  6. ACTONEL [Concomitant]
     Route: 065
  7. MIRALAX [Concomitant]
  8. PREVACID [Concomitant]
     Route: 065
  9. LISINOPRIL [Concomitant]
     Route: 065
  10. LIPITOR [Concomitant]
     Route: 065
  11. METOPROLOL SUCCINATE [Concomitant]
     Route: 065
  12. MIACALCIN [Concomitant]
     Route: 045
  13. NITROGLYCERIN [Concomitant]
     Route: 065
  14. GABAPENTIN [Concomitant]
     Route: 065
  15. KEPPRA [Concomitant]
     Route: 065
  16. UNSPECIFIED MEDICATION [Concomitant]
  17. ASPIRIN [Concomitant]
     Route: 065
  18. TYLENOL [Concomitant]
     Route: 065
  19. FLEXERIL [Concomitant]
     Route: 065
  20. VIAGRA [Concomitant]
     Route: 065
  21. INSULIN DETEMIR [Concomitant]
     Route: 065
  22. INSULIN ASPART [Concomitant]
     Route: 065
  23. LANTUS [Concomitant]
     Route: 065

REACTIONS (11)
  - CHEST PAIN [None]
  - DIZZINESS [None]
  - ERECTILE DYSFUNCTION [None]
  - HYPERLIPIDAEMIA [None]
  - HYPERTENSION [None]
  - INJECTION SITE ANAESTHESIA [None]
  - METABOLIC SYNDROME [None]
  - PAIN [None]
  - PAIN IN EXTREMITY [None]
  - TENDONITIS [None]
  - TYPE 2 DIABETES MELLITUS [None]
